FAERS Safety Report 6645007-9 (Version None)
Quarter: 2010Q1

REPORT INFORMATION
  Report Type: 
  Country: None (occurrence: None)
  Receive Date: 20100317
  Receipt Date: 20100301
  Transmission Date: 20100710
  Serious: Yes (Hospitalization, Other)
  Sender: FDA-Public Use
  Company Number: AE10-0014

PATIENT
  Age: 38 Year
  Sex: Male

DRUGS (1)
  1. BUPROPION HCL [Suspect]
     Indication: DEPRESSION
     Dosage: 150 MG/ DAY, ORAL
     Route: 048
     Dates: start: 20100224, end: 20100301

REACTIONS (7)
  - BRAIN STEM SYNDROME [None]
  - DEMYELINATION [None]
  - DIPLOPIA [None]
  - DIZZINESS [None]
  - EYE MOVEMENT DISORDER [None]
  - INFLAMMATION [None]
  - VISION BLURRED [None]
